FAERS Safety Report 15140205 (Version 1)
Quarter: 2018Q3

REPORT INFORMATION
  Report Type: Spontaneous
  Country: JP (occurrence: JP)
  Receive Date: 20180713
  Receipt Date: 20180713
  Transmission Date: 20181010
  Serious: Yes (Hospitalization, Other)
  Sender: FDA-Public Use
  Company Number: JP-009507513-1806JPN003187J

PATIENT
  Age: 73 Year
  Sex: Male

DRUGS (1)
  1. KEYTRUDA [Suspect]
     Active Substance: PEMBROLIZUMAB
     Indication: NON-SMALL CELL LUNG CANCER
     Dosage: 200 MG, Q3W
     Route: 041
     Dates: start: 201710, end: 2018

REACTIONS (4)
  - Diabetic ketoacidosis [Recovering/Resolving]
  - Ileus [Recovered/Resolved]
  - Type 1 diabetes mellitus [Recovering/Resolving]
  - Anti-zinc transporter 8 antibody positive [Unknown]

NARRATIVE: CASE EVENT DATE: 201806
